FAERS Safety Report 10171862 (Version 1)
Quarter: 2014Q2

REPORT INFORMATION
  Report Type: Spontaneous
  Country: GB (occurrence: None)
  Receive Date: 20140428
  Receipt Date: 20140428
  Transmission Date: 20141212
  Serious: Yes (Other)
  Sender: FDA-Public Use
  Company Number: 2013GMK007295

PATIENT
  Age: 45 Year
  Sex: Male
  Weight: 75 kg

DRUGS (3)
  1. ROPINIROLE [Suspect]
     Indication: PARKINSON^S DISEASE
     Route: 048
     Dates: start: 20081201, end: 20121201
  2. ESCITALOPRAM (ESCITALOPRAM) [Concomitant]
  3. SINEMET (CARBIDOPA, LEVODOPA) [Concomitant]

REACTIONS (1)
  - Hypersexuality [None]
